FAERS Safety Report 5186665-8 (Version None)
Quarter: 2006Q4

REPORT INFORMATION
  Report Type: 
  Country: None (occurrence: None)
  Receive Date: 20061213
  Receipt Date: 20061129
  Transmission Date: 20070319
  Serious: Yes (Hospitalization, Other)
  Sender: FDA-Public Use
  Company Number: 2006PV025993

PATIENT
  Age: 56 Year
  Sex: Female

DRUGS (17)
  1. BYETTA [Suspect]
     Indication: DIABETES MELLITUS NON-INSULIN-DEPENDENT
     Dosage: 10 MCG; BID; SC;  5 MCG; BID; SC
     Route: 058
     Dates: start: 20060701, end: 20061119
  2. BYETTA [Suspect]
     Indication: DIABETES MELLITUS NON-INSULIN-DEPENDENT
     Dosage: 10 MCG; BID; SC;  5 MCG; BID; SC
     Route: 058
     Dates: start: 20061120
  3. METFORMIN HCL [Concomitant]
  4. PLAVIX [Concomitant]
  5. ASPIRIN [Concomitant]
  6. LEVOTHYROXINE SODIUM [Concomitant]
  7. GLYBURIDE [Concomitant]
  8. LIPITOR [Concomitant]
  9. ZETIA [Concomitant]
  10. LISINOPRIL [Concomitant]
  11. DICYCLOMINE [Concomitant]
  12. LYRICA [Concomitant]
  13. PRILOSEC [Concomitant]
  14. REQUIP [Concomitant]
  15. FUROSEMIDE [Concomitant]
  16. KLOR-CON [Concomitant]
  17. ZELNORM [Concomitant]

REACTIONS (3)
  - CHEST PAIN [None]
  - CORONARY ARTERIAL STENT INSERTION [None]
  - MYOCARDIAL INFARCTION [None]
